FAERS Safety Report 10094875 (Version 4)
Quarter: 2014Q2

REPORT INFORMATION
  Report Type: Report from Study
  Country: US (occurrence: US)
  Receive Date: 20140422
  Receipt Date: 20140612
  Transmission Date: 20141212
  Serious: Yes (Death)
  Sender: FDA-Public Use
  Company Number: US-VERTEX PHARMACEUTICALS INC-2014-001978

PATIENT
  Age: 63 Year
  Sex: Female
  Weight: 75.7 kg

DRUGS (18)
  1. VX-770 [Suspect]
     Indication: CYSTIC FIBROSIS
     Dosage: 150 MG, BID
     Dates: start: 201311, end: 2014
  2. ALBUTEROL [Concomitant]
     Dosage: 2.5 MG, QD
  3. ALPRAZOLAM [Concomitant]
     Indication: ANXIETY DISORDER
     Dosage: 0.5 MG, PRN
     Route: 048
  4. AMLODIPINE [Concomitant]
     Dosage: 5 MG, QD
     Route: 048
  5. AZITHROMYCIN [Concomitant]
     Dosage: 250 MG, QD
     Route: 048
  6. CHOLECALCIFEROL [Concomitant]
     Dosage: 1000 IU, QD
     Route: 048
  7. COZAAR [Concomitant]
     Dosage: 50 MG, QD
     Route: 048
  8. PULMOZYME [Concomitant]
     Dosage: 2.5 MG, QD INHALATION
  9. FERROUS GLUCONATE [Concomitant]
     Dosage: UNK, QD
     Route: 048
  10. FLUCONAZOLE [Concomitant]
     Dosage: 150 MG, QD, PRN
     Route: 048
  11. FLUOXETINE [Concomitant]
     Dosage: 20 MG, QD
     Route: 048
  12. FLONASE [Concomitant]
     Dosage: 2 SPRAYS NASAL QD
  13. IPRATROPIUM/ALBUTEROL [Concomitant]
     Dosage: 2 PUFFS INTO LUNGS PRN
  14. PRILOSEC [Concomitant]
     Dosage: 20 MG, QD
     Route: 048
  15. FERROUS FUMARATE [Concomitant]
     Dosage: 1 DF, QD
     Route: 048
  16. SYMBICORT [Concomitant]
     Dosage: 2 PUFFS INTO LUNGS BID
  17. HYDROCODONE W/ACETAMINOPHEN [Concomitant]
     Dosage: 1 DF, BID, PRN
  18. SODIUM CHLORIDE [Concomitant]
     Dosage: 4 ML, QD INTO LUNGS

REACTIONS (1)
  - Death [Fatal]
